FAERS Safety Report 12211593 (Version 3)
Quarter: 2016Q2

REPORT INFORMATION
  Report Type: Spontaneous
  Country: US (occurrence: US)
  Receive Date: 20160325
  Receipt Date: 20160617
  Transmission Date: 20160815
  Serious: Yes (Other)
  Sender: FDA-Public Use
  Company Number: ALCN2016US002150

PATIENT
  Age: 54 Year
  Sex: Female
  Weight: 81.63 kg

DRUGS (2)
  1. BETADINE [Suspect]
     Active Substance: POVIDONE-IODINE
     Indication: INTRAOCULAR LENS IMPLANT
     Dosage: UNK
     Route: 047
     Dates: start: 20160202, end: 20160202
  2. BSS [Suspect]
     Active Substance: CALCIUM CHLORIDE\MAGNESIUM CHLORIDE\POTASSIUM CHLORIDE\SODIUM ACETATE\SODIUM CHLORIDE\SODIUM CITRATE
     Indication: INTRAOCULAR LENS IMPLANT
     Dosage: UNK
     Route: 047
     Dates: start: 20160202, end: 20160202

REACTIONS (2)
  - Toxic anterior segment syndrome [Recovered/Resolved]
  - Anterior chamber fibrin [Recovered/Resolved]

NARRATIVE: CASE EVENT DATE: 20160203
